FAERS Safety Report 22307173 (Version 1)
Quarter: 2023Q2

REPORT INFORMATION
  Report Type: Spontaneous
  Country: IT (occurrence: IT)
  Receive Date: 20230511
  Receipt Date: 20230511
  Transmission Date: 20230721
  Serious: Yes (Other)
  Sender: FDA-Public Use
  Company Number: IT-MINISAL02-921734

PATIENT
  Age: 44 Year
  Sex: Male

DRUGS (1)
  1. MIRTAZAPINE [Suspect]
     Active Substance: MIRTAZAPINE
     Indication: Major depression
     Dosage: 30 MILLIGRAM, ONCE A DAY,(30MG/DIE)
     Route: 048
     Dates: start: 20230401, end: 20230420

REACTIONS (1)
  - Xerophthalmia [Recovering/Resolving]

NARRATIVE: CASE EVENT DATE: 20230420
